FAERS Safety Report 4305240-8 (Version None)
Quarter: 2004Q1

REPORT INFORMATION
  Report Type: 
  Country: None (occurrence: None)
  Receive Date: 20040226
  Receipt Date: 20030911
  Transmission Date: 20041129
  Serious: No
  Sender: FDA-Public Use
  Company Number: US-BRISTOL-MYERS SQUIBB COMPANY-12380978

PATIENT
  Age: 39 Year
  Sex: Female
  Weight: 111 kg

DRUGS (4)
  1. DEFINITY [Suspect]
     Indication: CARDIAC STRESS TEST
     Route: 040
     Dates: start: 20030904, end: 20030904
  2. SODIUM CHLORIDE [Suspect]
     Indication: CARDIAC STRESS TEST
     Route: 040
     Dates: start: 20030904, end: 20030904
  3. ALLEGRA [Concomitant]
  4. ATENOLOL [Concomitant]

REACTIONS (4)
  - ABDOMINAL PAIN [None]
  - FEELING ABNORMAL [None]
  - NAUSEA [None]
  - VOMITING [None]
